FAERS Safety Report 20779763 (Version 1)
Quarter: 2022Q2

REPORT INFORMATION
  Report Type: Spontaneous
  Country: US (occurrence: US)
  Receive Date: 20220503
  Receipt Date: 20220503
  Transmission Date: 20220720
  Serious: No
  Sender: FDA-Public Use
  Company Number: US-PFIZER INC-202101828604

PATIENT
  Age: 64 Year
  Sex: Female
  Weight: 81.65 kg

DRUGS (3)
  1. PREGABALIN [Suspect]
     Active Substance: PREGABALIN
     Indication: Pain
     Dosage: 1 DF, 2X/DAY
     Route: 048
     Dates: start: 202111
  2. PREGABALIN [Suspect]
     Active Substance: PREGABALIN
     Indication: Arthritis
  3. PREGABALIN [Suspect]
     Active Substance: PREGABALIN
     Indication: Migraine

REACTIONS (6)
  - Drug ineffective [Unknown]
  - Off label use [Unknown]
  - Skin lesion [Unknown]
  - Rash macular [Unknown]
  - Rash [Unknown]
  - Pain [Unknown]

NARRATIVE: CASE EVENT DATE: 20210101
